FAERS Safety Report 4297133-X (Version None)
Quarter: 2004Q1

REPORT INFORMATION
  Report Type: 
  Country: None (occurrence: None)
  Receive Date: 20040213
  Receipt Date: 20040206
  Transmission Date: 20041129
  Serious: Yes (Hospitalization)
  Sender: FDA-Public Use
  Company Number: 2004198514FR

PATIENT
  Age: 73 Year
  Sex: Female

DRUGS (6)
  1. ALDACTONE [Suspect]
     Dosage: 50 MG, DAILY, ORAL
     Route: 048
     Dates: end: 20000314
  2. ISOPTIN [Suspect]
     Dosage: 240 MG, DAILY, ORAL
     Route: 048
     Dates: end: 20000316
  3. ETIOVEN (NAFTAZONE) [Suspect]
     Dosage: 10 MG, DAILY, ORAL
     Route: 048
     Dates: end: 20000315
  4. MEDIATENSYL (URAPIDIL) [Suspect]
     Dosage: 60 MG, DAILY, ORAL
     Route: 048
     Dates: end: 20000316
  5. LEXOMIL (BROMAZEPAM) [Suspect]
     Dosage: 2 DF, DAILY, ORAL
     Route: 048
  6. HYZAAR [Suspect]
     Dosage: 1 DF, DAILY, ORAL
     Route: 048
     Dates: end: 20000316

REACTIONS (3)
  - ASTHENIA [None]
  - HYPONATRAEMIA [None]
  - VERTIGO [None]
